FAERS Safety Report 18935523 (Version 1)
Quarter: 2021Q1

REPORT INFORMATION
  Report Type: Not Available
  Country: US (occurrence: US)
  Receive Date: 20210224
  Receipt Date: 20210224
  Transmission Date: 20210420
  Serious: Yes (Other)
  Sender: FDA-Public Use
  Company Number: US-NEUROCRINE BIOSCIENCES INC.-2021NBI00657

PATIENT
  Age: 74 Year
  Sex: Female

DRUGS (24)
  1. CARBIDOPA?LEVODOPA [Concomitant]
     Active Substance: CARBIDOPA\LEVODOPA
  2. HYDROCORTISONE. [Concomitant]
     Active Substance: HYDROCORTISONE
  3. MVI [Concomitant]
     Active Substance: VITAMINS
  4. PRIMIDONE. [Concomitant]
     Active Substance: PRIMIDONE
  5. ROPINIROLE. [Concomitant]
     Active Substance: ROPINIROLE
  6. FIBERCON [Concomitant]
     Active Substance: CALCIUM POLYCARBOPHIL
  7. NEUPOGEN [Concomitant]
     Active Substance: FILGRASTIM
  8. INGREZZA [Suspect]
     Active Substance: VALBENAZINE
     Indication: TARDIVE DYSKINESIA
     Route: 048
     Dates: start: 201805
  9. MONTELUKAST [Concomitant]
     Active Substance: MONTELUKAST SODIUM
  10. CETIRIZINE [Concomitant]
     Active Substance: CETIRIZINE HYDROCHLORIDE
  11. METFORMIN [Concomitant]
     Active Substance: METFORMIN HYDROCHLORIDE
  12. ONDANSETRON [Concomitant]
     Active Substance: ONDANSETRON
  13. IPRATROPIUM [Concomitant]
     Active Substance: IPRATROPIUM
  14. ESCITALOPRAM [Concomitant]
     Active Substance: ESCITALOPRAM OXALATE
  15. LYRICA [Concomitant]
     Active Substance: PREGABALIN
  16. AZELASTINE. [Concomitant]
     Active Substance: AZELASTINE HYDROCHLORIDE
  17. LOVASTATIN. [Concomitant]
     Active Substance: LOVASTATIN
  18. PANTOPRAZOLE [Concomitant]
     Active Substance: PANTOPRAZOLE
  19. VITAMIN B COMPLEX [Concomitant]
     Active Substance: CYANOCOBALAMIN\DEXPANTHENOL\NIACINAMIDE\PYRIDOXINE HYDROCHLORIDE\RIBOFLAVIN 5^-PHOSPHATE SODIUM\THIAMINE HYDROCHLORIDE\VITAMIN B COMPLEX
  20. FISH OIL [Concomitant]
     Active Substance: FISH OIL
  21. ACYCLOVIR. [Concomitant]
     Active Substance: ACYCLOVIR
  22. VITAMIN C [Concomitant]
     Active Substance: ASCORBIC ACID
  23. ZINC. [Concomitant]
     Active Substance: ZINC
  24. TRAZODONE [Concomitant]
     Active Substance: TRAZODONE HYDROCHLORIDE

REACTIONS (2)
  - Neoplasm malignant [Unknown]
  - SARS-CoV-2 test positive [Unknown]

NARRATIVE: CASE EVENT DATE: 202007
